FAERS Safety Report 14449101 (Version 2)
Quarter: 2018Q3

REPORT INFORMATION
  Report Type: Spontaneous
  Country: US (occurrence: US)
  Receive Date: 20180126
  Receipt Date: 20180716
  Transmission Date: 20181010
  Serious: Yes (Hospitalization)
  Sender: FDA-Public Use
  Company Number: US-DSJP-DSU-2017-138168

PATIENT

DRUGS (1)
  1. BENICAR HCT [Suspect]
     Active Substance: HYDROCHLOROTHIAZIDE\OLMESARTAN MEDOXOMIL
     Indication: HYPERTENSION
     Dosage: 40?25MG, QD
     Route: 048
     Dates: start: 20140903, end: 20160127

REACTIONS (3)
  - Cholecystitis acute [Recovered/Resolved]
  - Sprue-like enteropathy [Recovering/Resolving]
  - Hepatic steatosis [Unknown]

NARRATIVE: CASE EVENT DATE: 20150127
